FAERS Safety Report 7375437-1 (Version None)
Quarter: 2011Q1

REPORT INFORMATION
  Report Type: 
  Country: None (occurrence: None)
  Receive Date: 20110325
  Receipt Date: 20110318
  Transmission Date: 20110831
  Serious: Yes (Hospitalization, Other)
  Sender: FDA-Public Use
  Company Number: US-B.I. PHARMACEUTICALS,INC./RIDGEFIELD-2011-BP-02947BP

PATIENT
  Sex: Male

DRUGS (1)
  1. PRADAXA [Suspect]
     Indication: ATRIAL FIBRILLATION
     Dosage: 300 MG
     Route: 048
     Dates: start: 20110209

REACTIONS (8)
  - PARESIS [None]
  - VENTRICULAR HYPERTROPHY [None]
  - HEADACHE [None]
  - HAEMATOCHEZIA [None]
  - CEREBROVASCULAR ACCIDENT [None]
  - MONOPARESIS [None]
  - ATRIAL FLUTTER [None]
  - HEMIPARESIS [None]
